FAERS Safety Report 4659564-5 (Version None)
Quarter: 2005Q2

REPORT INFORMATION
  Report Type: 
  Country: None (occurrence: None)
  Receive Date: 20050510
  Receipt Date: 20050427
  Transmission Date: 20051028
  Serious: Yes (Life-Threatening, Hospitalization)
  Sender: FDA-Public Use
  Company Number: 2005067497

PATIENT
  Age: 65 Year
  Sex: Female

DRUGS (7)
  1. ATARAX [Suspect]
     Indication: ILL-DEFINED DISORDER
     Dosage: 25 MG (25 MG, 1 IN 1 D), ORAL
     Route: 048
     Dates: end: 20040626
  2. PRAZOSIN GITS [Suspect]
     Indication: ILL-DEFINED DISORDER
     Dosage: 10 MG (5 MG, 2 IN 1 D), ORAL
     Route: 048
     Dates: end: 20040626
  3. LEVOTHYROXINE SODIUM [Suspect]
     Indication: ILL-DEFINED DISORDER
     Dosage: 150 MCG (150 MCG, 1 IN 1 D), ORAL
     Route: 048
     Dates: end: 20040625
  4. AMIDARONE HYDROCHLORIDE                     (AMIODARONE HYDROCHLORIDE) [Suspect]
     Indication: ILL-DEFINED DISORDER
     Dosage: TWICE A DAY, ORAL
     Route: 048
     Dates: end: 20040625
  5. ESOMEPRAZOLE           (ESOMEPRAZOLE) [Suspect]
     Indication: ILL-DEFINED DISORDER
     Dosage: 80 MG (40 MG, 2 IN 1 D), ORAL
     Route: 048
     Dates: end: 20040626
  6. BISOPROLOL FUMARATE                  (BISOPROLOL FURMARTE) [Suspect]
     Indication: ILL-DEFINED DISORDER
     Dosage: 10 MG (10 MG, 1 IN 1 D), ORAL
     Route: 048
     Dates: end: 20040626
  7. SODIUM CHLORIDE 0.9% [Concomitant]

REACTIONS (4)
  - CARDIO-RESPIRATORY ARREST [None]
  - DIALYSIS [None]
  - HYPERKALAEMIA [None]
  - RENAL FAILURE ACUTE [None]
